FAERS Safety Report 8355401-6 (Version None)
Quarter: 2012Q2

REPORT INFORMATION
  Report Type: 
  Country: None (occurrence: None)
  Receive Date: 20120511
  Receipt Date: 20110405
  Transmission Date: 20120825
  Serious: No
  Sender: FDA-Public Use
  Company Number: US-TEVA-2011001671

PATIENT
  Sex: Female

DRUGS (1)
  1. NUVIGIL [Suspect]
     Indication: SLEEP APNOEA SYNDROME
     Dosage: 250 MILLIGRAM;
     Route: 048
     Dates: start: 20110201

REACTIONS (3)
  - PRODUCT TASTE ABNORMAL [None]
  - PRODUCT ODOUR ABNORMAL [None]
  - DRUG INEFFECTIVE [None]
